FAERS Safety Report 21629130 (Version 2)
Quarter: 2022Q4

REPORT INFORMATION
  Report Type: Spontaneous
  Country: US (occurrence: None)
  Receive Date: 20221122
  Receipt Date: 20221220
  Transmission Date: 20230113
  Serious: No
  Sender: FDA-Public Use
  Company Number: 2022A376016

PATIENT
  Age: 76 Year

DRUGS (1)
  1. BUDESONIDE\FORMOTEROL\GLYCOPYRRONIUM [Suspect]
     Active Substance: BUDESONIDE\FORMOTEROL\GLYCOPYRRONIUM
     Indication: Lung carcinoma cell type unspecified stage 0
     Dosage: 1 PUFF TWICE A DAY
     Route: 055
     Dates: start: 202210

REACTIONS (4)
  - Aphthous ulcer [Not Recovered/Not Resolved]
  - Oral pain [Recovering/Resolving]
  - Wrong technique in device usage process [Unknown]
  - Product use issue [Unknown]

NARRATIVE: CASE EVENT DATE: 20220101
